FAERS Safety Report 18022628 (Version 1)
Quarter: 2020Q3

REPORT INFORMATION
  Report Type: Spontaneous
  Country: FR (occurrence: FR)
  Receive Date: 20200714
  Receipt Date: 20200714
  Transmission Date: 20201103
  Serious: Yes (Hospitalization)
  Sender: FDA-Public Use
  Company Number: FR-MYLANLABS-2020M1062905

PATIENT
  Age: 24 Year
  Sex: Female
  Weight: 53 kg

DRUGS (12)
  1. CASPOFUNGINE [Concomitant]
     Active Substance: CASPOFUNGIN
     Dosage: UNK
  2. ARACYTINE [Suspect]
     Active Substance: CYTARABINE
     Indication: ACUTE MYELOID LEUKAEMIA
     Dosage: UNK (NON CONNUE)
     Route: 042
     Dates: start: 20200520, end: 20200610
  3. OGASTORO [Concomitant]
     Active Substance: LANSOPRAZOLE
     Dosage: UNK
  4. TAZOCILLINE [Suspect]
     Active Substance: PIPERACILLIN SODIUM\TAZOBACTAM SODIUM
     Indication: INFECTION PROPHYLAXIS
     Dosage: 4 DOSAGE FORM, QD (STRENGTH: 4 G / 500 MG)
     Route: 042
     Dates: start: 20200529, end: 20200612
  5. LUTENYL [Concomitant]
     Active Substance: NOMEGESTROL ACETATE
     Dosage: UNK
  6. ZARZIO [Concomitant]
     Active Substance: FILGRASTIM
     Dosage: UNK
  7. DOLIPRANE [Concomitant]
     Active Substance: ACETAMINOPHEN
     Dosage: UNK
  8. LEXOMIL [Concomitant]
     Active Substance: BROMAZEPAM
     Dosage: UNK
  9. RYDAPT [Suspect]
     Active Substance: MIDOSTAURIN
     Indication: ACUTE MYELOID LEUKAEMIA
     Dosage: UNK
     Dates: start: 20200527, end: 20200610
  10. ZOVIRAX [Concomitant]
     Active Substance: ACYCLOVIR
     Dosage: UNK
  11. NOVANTRONE [Suspect]
     Active Substance: MITOXANTRONE HYDROCHLORIDE
     Indication: ACUTE MYELOID LEUKAEMIA
     Dosage: UNK (NON CONNUE)
     Route: 042
     Dates: start: 20200520, end: 20200610
  12. ATARAX [Concomitant]
     Active Substance: HYDROXYZINE HYDROCHLORIDE
     Dosage: UNK

REACTIONS (1)
  - Toxic skin eruption [Recovering/Resolving]

NARRATIVE: CASE EVENT DATE: 20200611
